FAERS Safety Report 4621548-0 (Version None)
Quarter: 2005Q1

REPORT INFORMATION
  Report Type: 
  Country: None (occurrence: None)
  Receive Date: 20050328
  Receipt Date: 20040308
  Transmission Date: 20050727
  Serious: No
  Sender: FDA-Public Use
  Company Number: 7600

PATIENT
  Age: 76 Year
  Sex: Female

DRUGS (5)
  1. CISPLATIN [Suspect]
     Indication: BLADDER CANCER
     Dosage: 70 MG/M2 PER CYCLE; IA
     Route: 014
  2. VINCRISTINE [Suspect]
     Indication: BLADDER CANCER
     Dosage: 3 MG/M2 PER CYCLE, IV
     Route: 042
  3. METHOTREXATE [Suspect]
     Indication: BLADDER CANCER
     Dosage: 150 MG/M2 PER CYCLE; IV
     Route: 042
  4. DOXORUBICIN HCL [Suspect]
     Indication: BLADDER CANCER
     Dosage: 30 MG/M2 PER CYCLE; IA
     Route: 014
  5. PEPLOMYCIN [Suspect]
     Indication: BLADDER CANCER
     Dosage: 15 MG/M2 PER CYCLE; IV
     Route: 042

REACTIONS (3)
  - DISSEMINATED INTRAVASCULAR COAGULATION [None]
  - INFECTION [None]
  - PANCYTOPENIA [None]
